FAERS Safety Report 8312945-0 (Version None)
Quarter: 2012Q2

REPORT INFORMATION
  Report Type: 
  Country: None (occurrence: None)
  Receive Date: 20120426
  Receipt Date: 20120413
  Transmission Date: 20120825
  Serious: Yes (Hospitalization)
  Sender: FDA-Public Use
  Company Number: JP-US-EMD SERONO, INC.-7109283

PATIENT
  Sex: Female
  Weight: 62 kg

DRUGS (4)
  1. GONAL-F RFF PEN [Suspect]
     Indication: OVULATION DISORDER
  2. CLOMIPHENE CITRATE [Suspect]
     Indication: PRODUCT USED FOR UNKNOWN INDICATION
     Dates: start: 20110208, end: 20110212
  3. GONAL-F RFF PEN [Suspect]
     Indication: POLYCYSTIC OVARIES
     Route: 058
     Dates: start: 20110214, end: 20110219
  4. PREGNYL [Suspect]
     Indication: PRODUCT USED FOR UNKNOWN INDICATION
     Dates: start: 20110220, end: 20110220

REACTIONS (3)
  - BENIGN HYDATIDIFORM MOLE [None]
  - OVARIAN HYPERSTIMULATION SYNDROME [None]
  - OVARIAN TORSION [None]
